FAERS Safety Report 18025603 (Version 1)
Quarter: 2020Q3

REPORT INFORMATION
  Report Type: Spontaneous
  Country: US (occurrence: US)
  Receive Date: 20200715
  Receipt Date: 20200715
  Transmission Date: 20201103
  Serious: No
  Sender: FDA-Public Use
  Company Number: US-CHARTWELL PHARMACOVIGILANCE, LLC.-2087384

PATIENT
  Age: 87 Year
  Sex: Female
  Weight: 72.73 kg

DRUGS (1)
  1. DOXYCYCLINE HYCLATE. [Suspect]
     Active Substance: DOXYCYCLINE HYCLATE
     Indication: INFECTION
     Route: 048
     Dates: start: 20200327, end: 20200327

REACTIONS (2)
  - Nasal congestion [Unknown]
  - Asthenia [Unknown]

NARRATIVE: CASE EVENT DATE: 20200327
